FAERS Safety Report 17129835 (Version 1)
Quarter: 2019Q4

REPORT INFORMATION
  Report Type: Spontaneous
  Country: GB (occurrence: GB)
  Receive Date: 20191209
  Receipt Date: 20191209
  Transmission Date: 20200122
  Serious: Yes (Hospitalization)
  Sender: FDA-Public Use
  Company Number: GB-ELI_LILLY_AND_COMPANY-GB201912001698

PATIENT
  Sex: Female

DRUGS (1)
  1. PRASUGREL HYDROCHLORIDE [Suspect]
     Active Substance: PRASUGREL HYDROCHLORIDE
     Indication: THROMBOSIS
     Dosage: UNK UNK, UNKNOWN
     Route: 065

REACTIONS (1)
  - Loss of consciousness [Unknown]
